FAERS Safety Report 5175170-0 (Version None)
Quarter: 2006Q4

REPORT INFORMATION
  Report Type: 
  Country: None (occurrence: None)
  Receive Date: 20061214
  Receipt Date: 20060116
  Transmission Date: 20070319
  Serious: No
  Sender: FDA-Public Use
  Company Number: US-AMGEN-KDL164944

PATIENT
  Sex: Female

DRUGS (4)
  1. ENBREL [Suspect]
     Indication: PSORIASIS
     Route: 065
     Dates: start: 20051017
  2. CYTOMEL [Concomitant]
     Route: 065
  3. DIPROLEN [Concomitant]
     Route: 065
  4. ZYBAN [Concomitant]
     Route: 065

REACTIONS (1)
  - INJECTION SITE REACTION [None]
